FAERS Safety Report 13575742 (Version 1)
Quarter: 2017Q2

REPORT INFORMATION
  Report Type: Spontaneous
  Country: US (occurrence: US)
  Receive Date: 20170523
  Receipt Date: 20170523
  Transmission Date: 20170830
  Serious: Yes (Other)
  Sender: FDA-Public Use
  Company Number: None

PATIENT
  Age: 79 Year
  Sex: Male
  Weight: 63.45 kg

DRUGS (6)
  1. OMEPRAZOLE. [Concomitant]
     Active Substance: OMEPRAZOLE
  2. LUPRON DEPOT [Concomitant]
     Active Substance: LEUPROLIDE ACETATE
  3. FLECAINIDE ACETATE. [Concomitant]
     Active Substance: FLECAINIDE ACETATE
  4. ZYTIGA [Suspect]
     Active Substance: ABIRATERONE ACETATE
     Indication: PROSTATE CANCER
     Route: 048
  5. PREDNISONE. [Concomitant]
     Active Substance: PREDNISONE
  6. IBUPROFEN. [Concomitant]
     Active Substance: IBUPROFEN

REACTIONS (1)
  - Bone pain [None]

NARRATIVE: CASE EVENT DATE: 20170523
